FAERS Safety Report 11495760 (Version 3)
Quarter: 2015Q4

REPORT INFORMATION
  Report Type: Spontaneous
  Country: US (occurrence: US)
  Receive Date: 20150911
  Receipt Date: 20151105
  Transmission Date: 20160304
  Serious: No
  Sender: FDA-Public Use
  Company Number: US-PFIZER INC-2015294458

PATIENT
  Sex: Male

DRUGS (1)
  1. ADVIL [Suspect]
     Active Substance: IBUPROFEN
     Dosage: UNK

REACTIONS (6)
  - Product difficult to swallow [Unknown]
  - Product size issue [Unknown]
  - Product physical issue [Unknown]
  - Foreign body [Unknown]
  - Oropharyngeal pain [Unknown]
  - Dysphagia [Unknown]
